FAERS Safety Report 15195829 (Version 2)
Quarter: 2018Q4

REPORT INFORMATION
  Report Type: Spontaneous
  Country: US (occurrence: US)
  Receive Date: 20180725
  Receipt Date: 20181015
  Transmission Date: 20190204
  Serious: No
  Sender: FDA-Public Use
  Company Number: US-PFIZER INC-2018297912

PATIENT
  Sex: Female
  Weight: 64 kg

DRUGS (1)
  1. METHOTREXATE SODIUM. [Suspect]
     Active Substance: METHOTREXATE SODIUM
     Indication: RHEUMATOID ARTHRITIS
     Dosage: UNK
     Dates: start: 2001

REACTIONS (3)
  - Drug effect incomplete [Unknown]
  - Memory impairment [Recovered/Resolved]
  - Drug hypersensitivity [Unknown]
